FAERS Safety Report 4778894-X (Version None)
Quarter: 2005Q3

REPORT INFORMATION
  Report Type: 
  Country: None (occurrence: None)
  Receive Date: 20050922
  Receipt Date: 20050912
  Transmission Date: 20060218
  Serious: Yes (Hospitalization, Disabling)
  Sender: FDA-Public Use
  Company Number: 2005RL000121

PATIENT
  Age: 72 Year
  Sex: Male
  Weight: 97.5234 kg

DRUGS (9)
  1. ANTARA (130 MG) [Suspect]
     Indication: HYPERTRIGLYCERIDAEMIA
     Dosage: 130 MG; QD; PO
     Route: 048
     Dates: start: 20050201
  2. WELCHOL [Concomitant]
  3. ALPRAZOLAM [Concomitant]
  4. ASPIRIN [Concomitant]
  5. PLAVIX [Concomitant]
  6. AMBIEN [Concomitant]
  7. SEROQUEL [Concomitant]
  8. REMERON [Concomitant]
  9. GLUCOSAMINE [Concomitant]

REACTIONS (8)
  - ABASIA [None]
  - ACTIVITIES OF DAILY LIVING IMPAIRED [None]
  - ASTHENIA [None]
  - DYSSTASIA [None]
  - INTERVERTEBRAL DISC PROTRUSION [None]
  - MUSCLE SPASMS [None]
  - MUSCULOSKELETAL PAIN [None]
  - NERVE COMPRESSION [None]
